FAERS Safety Report 22745405 (Version 2)
Quarter: 2023Q4

REPORT INFORMATION
  Report Type: Report from Study
  Country: US (occurrence: US)
  Receive Date: 20230725
  Receipt Date: 20231027
  Transmission Date: 20240110
  Serious: Yes (Hospitalization, Other)
  Sender: FDA-Public Use
  Company Number: US-ABBVIE-5338970

PATIENT
  Age: 62 Year
  Sex: Female
  Weight: 75 kg

DRUGS (1)
  1. HUMIRA [Suspect]
     Active Substance: ADALIMUMAB
     Indication: Product used for unknown indication
     Dosage: CITRATE FREE
     Route: 058

REACTIONS (9)
  - Abdominal adhesions [Recovering/Resolving]
  - Typhoid fever [Not Recovered/Not Resolved]
  - Fungal infection [Unknown]
  - Salmonellosis [Unknown]
  - Gastroenteritis [Unknown]
  - Pain [Unknown]
  - Bacteraemia [Unknown]
  - Small intestinal obstruction [Recovering/Resolving]
  - Muscle spasms [Unknown]

NARRATIVE: CASE EVENT DATE: 20230717
